FAERS Safety Report 4728841-1 (Version None)
Quarter: 2005Q3

REPORT INFORMATION
  Report Type: 
  Country: None (occurrence: None)
  Receive Date: 20050729
  Receipt Date: 20050719
  Transmission Date: 20060218
  Serious: Yes (Hospitalization)
  Sender: FDA-Public Use
  Company Number: JP-ROCHE-411240

PATIENT
  Age: 31 Year
  Sex: Female

DRUGS (5)
  1. DIAZEPAM [Suspect]
     Indication: HEADACHE
     Route: 042
  2. SOSEGON [Suspect]
     Indication: HEADACHE
     Route: 042
  3. ANALGESICS NOS [Concomitant]
     Route: 048
  4. ANALGESICS NOS [Concomitant]
     Route: 030
  5. ANTIDEPRESSANTS [Concomitant]
     Indication: DEPRESSION
     Route: 048

REACTIONS (2)
  - MUSCULAR WEAKNESS [None]
  - RESPIRATORY ARREST [None]
